FAERS Safety Report 17979690 (Version 1)
Quarter: 2020Q3

REPORT INFORMATION
  Report Type: Report from Study
  Country: FR (occurrence: FR)
  Receive Date: 20200703
  Receipt Date: 20200703
  Transmission Date: 20201103
  Serious: Yes (Other)
  Sender: FDA-Public Use
  Company Number: FR-JNJFOC-20200634736

PATIENT

DRUGS (3)
  1. REMICADE [Suspect]
     Active Substance: INFLIXIMAB
     Route: 042
  2. REMICADE [Suspect]
     Active Substance: INFLIXIMAB
     Route: 042
  3. REMICADE [Suspect]
     Active Substance: INFLIXIMAB
     Indication: INFLAMMATORY BOWEL DISEASE
     Route: 042

REACTIONS (15)
  - Fungal infection [Unknown]
  - Ear infection [Unknown]
  - Genitourinary tract infection [Unknown]
  - Tooth infection [Unknown]
  - Rhinitis [Unknown]
  - Mucosal infection [Unknown]
  - Viral infection [Unknown]
  - Influenza [Unknown]
  - Pneumonia [Unknown]
  - Gastrointestinal infection [Unknown]
  - Pharyngitis [Unknown]
  - Influenza like illness [Unknown]
  - Eye infection [Unknown]
  - Bacterial infection [Unknown]
  - Skin infection [Unknown]
